FAERS Safety Report 8090783-4 (Version None)
Quarter: 2012Q1

REPORT INFORMATION
  Report Type: 
  Country: None (occurrence: None)
  Receive Date: 20120125
  Receipt Date: 20120112
  Transmission Date: 20120608
  Serious: Yes (Death)
  Sender: FDA-Public Use
  Company Number: 1164803

PATIENT
  Sex: Female

DRUGS (10)
  1. TAMOXIFEN CITRATE [Suspect]
     Indication: PELVIC MASS
     Dosage: 20 MG/DAY, UNKNOWN, UNKNOWN
  2. CISPLATIN [Suspect]
     Indication: PELVIC MASS
     Dosage: 40 MG/M^2, UNKNOWN, UNKNOWN
  3. DOXORUBICIN HCL [Suspect]
     Indication: BREAST CANCER
     Dosage: 50 MG/M^2, UNKNOWN, UNKNOWN
  4. PACLITAXEL [Suspect]
     Indication: BREAST CANCER
     Dosage: 175 MG/M^2, UNKNOWN, UNKNOWN
  5. PACLITAXEL [Suspect]
     Indication: PELVIC MASS
     Dosage: 175 MG/M^2, UNKNOWN, UNKNOWN
  6. PACLITAXEL [Suspect]
     Indication: ADENOCARCINOMA
     Dosage: 175 MG/M^2, UNKNOWN, UNKNOWN
  7. CARBOPLATIN [Suspect]
     Indication: PELVIC MASS
  8. CARBOPLATIN [Suspect]
     Indication: ADENOCARCINOMA
  9. THERAPEUTIC RADIOPHARMACEUTICALS [Suspect]
     Indication: BREAST CANCER
  10. GEMCITABINE [Suspect]
     Indication: PELVIC MASS
     Dosage: 1 G/M^2, UNKNOWN, UNKNOWN

REACTIONS (7)
  - ANAEMIA [None]
  - PNEUMONIA [None]
  - OVARIAN EPITHELIAL CANCER METASTATIC [None]
  - MYELODYSPLASTIC SYNDROME [None]
  - LEUKOPENIA [None]
  - NECROTISING COLITIS [None]
  - THROMBOCYTOPENIA [None]
